FAERS Safety Report 7389923-1 (Version None)
Quarter: 2011Q1

REPORT INFORMATION
  Report Type: 
  Country: None (occurrence: None)
  Receive Date: 20110329
  Receipt Date: 20110329
  Transmission Date: 20110831
  Serious: Yes (Hospitalization, Disabling)
  Sender: FDA-Public Use
  Company Number: None

PATIENT
  Age: 64 Year
  Sex: Male
  Weight: 98.3 kg

DRUGS (19)
  1. HUMALOG [Concomitant]
  2. ATORVASTATIN [Concomitant]
  3. ASPIRIN [Concomitant]
  4. LANTUS [Concomitant]
  5. PRIMIDONE [Concomitant]
  6. VITAMIN D [Concomitant]
  7. METOPROLOL TARTRATE [Concomitant]
  8. URSODIOL [Concomitant]
  9. PREDNISONE [Concomitant]
  10. PANTOPRAZOLE [Concomitant]
  11. PROGRAF [Concomitant]
  12. CIPROFLOXACIN [Concomitant]
  13. TAMSULOSIN [Concomitant]
  14. LACTOBACILLUS [Concomitant]
  15. CITALOPRAM [Concomitant]
  16. CALCIUM CARBONATE [Concomitant]
  17. CIDOFOVIR [Suspect]
     Indication: POLYOMAVIRUS-ASSOCIATED NEPHROPATHY
     Dosage: 200MG TWICE WEEKLY PO
     Route: 048
     Dates: start: 20101217, end: 20101230
  18. LEVOTHYROXINE [Concomitant]
  19. FUROSEMIDE [Concomitant]

REACTIONS (5)
  - POST PROCEDURAL COMPLICATION [None]
  - GASTROINTESTINAL HAEMORRHAGE [None]
  - DIARRHOEA [None]
  - VOMITING [None]
  - NAUSEA [None]
